FAERS Safety Report 4705410-0 (Version None)
Quarter: 2005Q3

REPORT INFORMATION
  Report Type: 
  Country: None (occurrence: None)
  Receive Date: 20050701
  Receipt Date: 20041125
  Transmission Date: 20060218
  Serious: Yes (Hospitalization, Congenital Anomaly)
  Sender: FDA-Public Use
  Company Number: FR-GLAXOSMITHKLINE-B0358121B

PATIENT
  Sex: Male
  Weight: 2.9 kg

DRUGS (7)
  1. FLIXONASE [Suspect]
     Dosage: 1UNIT PER DAY
     Dates: end: 20041022
  2. BRONCHODUAL [Suspect]
     Indication: ASTHMA
     Dosage: 1UNIT THREE TIMES PER DAY
     Dates: end: 20041022
  3. TELFAST [Suspect]
     Indication: ASTHMA
     Dates: end: 20041022
  4. AERIUS [Suspect]
     Indication: ASTHMA
     Dates: end: 20041022
  5. ZADITEN [Suspect]
     Indication: ASTHMA
     Dosage: 1UNIT PER DAY
     Dates: end: 20041022
  6. SERETIDE [Concomitant]
     Indication: ASTHMA
     Dosage: 1PUFF TWICE PER DAY
     Dates: end: 20041022
  7. CONTRACEPTIVE PILL [Concomitant]

REACTIONS (7)
  - COARCTATION OF THE AORTA [None]
  - DRUG EXPOSURE DURING PREGNANCY [None]
  - GASTROINTESTINAL MALFORMATION [None]
  - HEART DISEASE CONGENITAL [None]
  - OESOPHAGEAL ATRESIA [None]
  - SALIVARY HYPERSECRETION [None]
  - VENTRICULAR SEPTAL DEFECT [None]
